FAERS Safety Report 20967601 (Version 1)
Quarter: 2022Q2

REPORT INFORMATION
  Report Type: Spontaneous
  Country: DE (occurrence: DE)
  Receive Date: 20220616
  Receipt Date: 20220616
  Transmission Date: 20220721
  Serious: Yes (Death, Other)
  Sender: FDA-Public Use
  Company Number: DE-PFIZER INC-202200827674

PATIENT

DRUGS (1)
  1. MITOXANTRONE HYDROCHLORIDE [Suspect]
     Active Substance: MITOXANTRONE HYDROCHLORIDE
     Dosage: 100 MG/M2, SINGLE

REACTIONS (4)
  - Cardiac failure [Fatal]
  - Cardiac dysfunction [Unknown]
  - Myelosuppression [Unknown]
  - Accidental overdose [Unknown]
